FAERS Safety Report 24533602 (Version 1)
Quarter: 2024Q4

REPORT INFORMATION
  Report Type: Spontaneous
  Country: US (occurrence: None)
  Receive Date: 20241021
  Receipt Date: 20241021
  Transmission Date: 20250114
  Serious: Yes (Hospitalization)
  Sender: Public
  Company Number: None

PATIENT
  Age: 81 Year
  Sex: Female

DRUGS (1)
  1. TASIGNA [Suspect]
     Active Substance: NILOTINIB
     Indication: Dermatitis atopic
     Dosage: OTHER QUANTITY : 400MG (2 CAPSULES);?FREQUENCY : TWICE A DAY;?

REACTIONS (1)
  - Hip arthroplasty [None]
